FAERS Safety Report 7642695-5 (Version None)
Quarter: 2011Q3

REPORT INFORMATION
  Report Type: 
  Country: None (occurrence: None)
  Receive Date: 20110728
  Receipt Date: 20110726
  Transmission Date: 20111222
  Serious: No
  Sender: FDA-Public Use
  Company Number: US-PFIZER INC-2011170922

PATIENT
  Sex: Male
  Weight: 72 kg

DRUGS (7)
  1. LISINOPRIL [Concomitant]
     Indication: HYPERTENSION
     Dosage: 40 MG, DAILY
  2. COUMADIN [Concomitant]
     Indication: ANTICOAGULANT THERAPY
     Dosage: 9 MG, DAILY
  3. LASIX [Concomitant]
     Indication: PULMONARY OEDEMA
     Dosage: 20 MG, DAILY
  4. POTASSIUM [Concomitant]
     Dosage: 10 MG, DAILY
  5. MOTRIN [Concomitant]
     Indication: CHEST PAIN
  6. TIKOSYN [Suspect]
     Indication: CARDIAC ABLATION
     Dosage: 500 UG, 2X/DAY
     Route: 048
     Dates: start: 20110722
  7. MOTRIN [Concomitant]
     Indication: CHEST DISCOMFORT
     Dosage: 600 MG, AS NEEDED

REACTIONS (3)
  - NERVOUSNESS [None]
  - IRRITABILITY [None]
  - MEMORY IMPAIRMENT [None]
